FAERS Safety Report 8587436-2 (Version None)
Quarter: 2012Q3

REPORT INFORMATION
  Report Type: 
  Country: None (occurrence: None)
  Receive Date: 20120810
  Receipt Date: 20120430
  Transmission Date: 20120928
  Serious: Yes (Other)
  Sender: FDA-Public Use
  Company Number: US-ASTRAZENECA-2011SE74449

PATIENT
  Age: 19794 Day
  Sex: Female
  Weight: 63.6 kg

DRUGS (2)
  1. ARIMIDEX [Suspect]
     Indication: BREAST CANCER
     Route: 048
     Dates: start: 20110615, end: 20110715
  2. ARIMIDEX [Suspect]
     Route: 048
     Dates: start: 20110823, end: 20110923

REACTIONS (4)
  - ABDOMINAL DISCOMFORT [None]
  - PAIN IN EXTREMITY [None]
  - LIVER FUNCTION TEST ABNORMAL [None]
  - MALAISE [None]
